FAERS Safety Report 5973488-2 (Version None)
Quarter: 2008Q4

REPORT INFORMATION
  Report Type: 
  Country: None (occurrence: None)
  Receive Date: 20081201
  Receipt Date: 20081121
  Transmission Date: 20090506
  Serious: Yes (Death, Other)
  Sender: FDA-Public Use
  Company Number: US-ELI_LILLY_AND_COMPANY-US200811001934

PATIENT
  Sex: Female
  Weight: 112.2 kg

DRUGS (16)
  1. BYETTA [Suspect]
     Indication: DIABETES MELLITUS
     Dosage: 5 UG, UNKNOWN
     Route: 058
     Dates: start: 20070222
  2. METFORMIN HCL [Concomitant]
     Indication: DIABETES MELLITUS
     Dosage: 1000 MG, 2/D
  3. LANTUS [Concomitant]
     Indication: DIABETES MELLITUS
     Dosage: 80 U, DAILY (1/D)
  4. SEROQUEL [Concomitant]
     Indication: MENTAL DISORDER
     Dosage: 400 MG, DAILY (1/D)
  5. PROVIGIL [Concomitant]
     Indication: MENTAL DISORDER
     Dosage: 400 MG, DAILY (1/D)
  6. VICODIN [Concomitant]
     Indication: PAIN
     Dosage: UNK, AS NEEDED
  7. IMDUR [Concomitant]
     Indication: CORONARY ARTERY DISEASE
     Dosage: 30 MG, EACH MORNING
  8. ABILIFY [Concomitant]
     Indication: MENTAL DISORDER
     Dosage: 30 MG, DAILY (1/D)
  9. LEXAPRO [Concomitant]
     Indication: MENTAL DISORDER
     Dosage: 20 MG, DAILY (1/D)
  10. TOPROL-XL [Concomitant]
     Indication: BLOOD PRESSURE
     Dosage: 40 MG, DAILY (1/D)
  11. NEXIUM [Concomitant]
     Indication: GASTROOESOPHAGEAL REFLUX DISEASE
     Dosage: 40 MG, DAILY (1/D)
  12. ADVAIR HFA [Concomitant]
     Indication: CHRONIC OBSTRUCTIVE PULMONARY DISEASE
     Dosage: 1 UNK, 2/D
  13. ALBUTEROL [Concomitant]
     Dosage: 2 UNK, AS NEEDED
  14. LIPITOR [Concomitant]
     Dosage: 40 MG, DAILY (1/D)
  15. FLONASE [Concomitant]
     Dosage: 100 UG, DAILY (1/D)
  16. PRINIVIL [Concomitant]
     Indication: HYPERTENSION
     Dosage: 40 MG, DAILY (1/D)

REACTIONS (2)
  - DEATH [None]
  - DYSPNOEA [None]
